FAERS Safety Report 9791013 (Version 3)
Quarter: 2014Q1

REPORT INFORMATION
  Report Type: Report from Study
  Country: US (occurrence: US)
  Receive Date: 20131231
  Receipt Date: 20140117
  Transmission Date: 20141002
  Serious: Yes (Other)
  Sender: FDA-Public Use
  Company Number: US-IPSEN BIOPHARMACEUTICALS, INC.-2013-5919

PATIENT
  Age: 61 Year
  Sex: Male

DRUGS (8)
  1. SOMATULINE DEPOT INJECTION (90MG) [Suspect]
     Indication: ACROMEGALY
     Dosage: 90 MG
     Route: 065
     Dates: start: 20101211, end: 201210
  2. SOMATULINE DEPOT INJECTION (90MG) [Suspect]
     Dosage: 90 MG
     Route: 065
     Dates: start: 201312
  3. TRAMADOL [Concomitant]
     Indication: PRODUCT USED FOR UNKNOWN INDICATION
     Dosage: NOT REPORTED
     Route: 065
  4. LISINOPRIL [Concomitant]
     Indication: PRODUCT USED FOR UNKNOWN INDICATION
     Dosage: NOT REPORTED
     Route: 065
  5. TERAZOSIN [Concomitant]
     Indication: PRODUCT USED FOR UNKNOWN INDICATION
     Dosage: NOT REPORTED
     Route: 065
  6. NABUMETONE [Concomitant]
     Indication: PRODUCT USED FOR UNKNOWN INDICATION
     Dosage: NOT REPORTED
     Route: 065
  7. FISHOIL [Concomitant]
     Indication: PRODUCT USED FOR UNKNOWN INDICATION
     Dosage: NOT REPORTED
     Route: 065
  8. MULTI VITAMIN [Concomitant]
     Indication: PRODUCT USED FOR UNKNOWN INDICATION
     Dosage: NOT REPORTED
     Route: 065

REACTIONS (4)
  - Spinal fracture [Unknown]
  - Back pain [Unknown]
  - Gait disturbance [Unknown]
  - Diplegia [Unknown]
